FAERS Safety Report 19846097 (Version 1)
Quarter: 2021Q3

REPORT INFORMATION
  Report Type: Spontaneous
  Country: PL (occurrence: PL)
  Receive Date: 20210916
  Receipt Date: 20210916
  Transmission Date: 20211014
  Serious: Yes (Death, Other)
  Sender: FDA-Public Use
  Company Number: PL-ABBVIE-21K-129-4081303-00

PATIENT
  Age: 7 Month
  Sex: Female

DRUGS (1)
  1. DEPAKINE [Suspect]
     Active Substance: VALPROATE SODIUM
     Indication: EPILEPSY
     Route: 048

REACTIONS (1)
  - Dysgraphia [Fatal]

NARRATIVE: CASE EVENT DATE: 2001
